FAERS Safety Report 12915645 (Version 1)
Quarter: 2016Q4

REPORT INFORMATION
  Report Type: Spontaneous
  Country: US (occurrence: US)
  Receive Date: 20161106
  Receipt Date: 20161106
  Transmission Date: 20170207
  Serious: No
  Sender: FDA-Public Use
  Company Number: US-RELYPSA-RLY2016001995

PATIENT
  Age: 68 Year
  Sex: Male

DRUGS (3)
  1. VELTASSA [Suspect]
     Active Substance: PATIROMER
     Dosage: UNK, QD
     Dates: start: 201609
  2. VELTASSA [Suspect]
     Active Substance: PATIROMER
     Indication: BLOOD POTASSIUM
     Dosage: UNK
     Dates: start: 201607, end: 2016
  3. VELTASSA [Suspect]
     Active Substance: PATIROMER
     Dosage: UNK, QOD
     Dates: start: 2016, end: 201609

REACTIONS (4)
  - Abdominal discomfort [Recovered/Resolved]
  - Inappropriate schedule of drug administration [Recovered/Resolved]
  - Blood potassium increased [Not Recovered/Not Resolved]
  - Abdominal pain upper [Recovered/Resolved]

NARRATIVE: CASE EVENT DATE: 2016
